FAERS Safety Report 18175312 (Version 1)
Quarter: 2020Q3

REPORT INFORMATION
  Report Type: Spontaneous
  Country: US (occurrence: US)
  Receive Date: 20200820
  Receipt Date: 20200820
  Transmission Date: 20201103
  Serious: Yes (Death)
  Sender: FDA-Public Use
  Company Number: None

PATIENT
  Age: 46 Year
  Sex: Female

DRUGS (1)
  1. AXICABTAGENE CILOLEUCEL [Suspect]
     Active Substance: AXICABTAGENE CILOLEUCEL

REACTIONS (16)
  - Ventricular tachycardia [None]
  - Lymphocyte adoptive therapy [None]
  - Cytokine release syndrome [None]
  - Anxiety [None]
  - Pneumonia aspiration [None]
  - Arthralgia [None]
  - Hypertension [None]
  - Multiple organ dysfunction syndrome [None]
  - Staphylococcal infection [None]
  - Brain oedema [None]
  - Pleural effusion [None]
  - Pulmonary infarction [None]
  - Tumour invasion [None]
  - Thrombosis in device [None]
  - Immune effector cell-associated neurotoxicity syndrome [None]
  - Tumour compression [None]

NARRATIVE: CASE EVENT DATE: 20200715
